FAERS Safety Report 6868844-4 (Version None)
Quarter: 2010Q3

REPORT INFORMATION
  Report Type: 
  Country: None (occurrence: None)
  Receive Date: 20100722
  Receipt Date: 20080811
  Transmission Date: 20110219
  Serious: No
  Sender: FDA-Public Use
  Company Number: US-PFIZER INC-2008053467

PATIENT
  Sex: Female
  Weight: 77.11 kg

DRUGS (3)
  1. CHANTIX [Suspect]
     Indication: SMOKING CESSATION THERAPY
     Dates: start: 20080621
  2. COZAAR [Concomitant]
     Indication: BLOOD PRESSURE ABNORMAL
  3. ORAL CONTRACEPTIVE NOS [Concomitant]

REACTIONS (7)
  - COUGH [None]
  - DRUG INEFFECTIVE [None]
  - FEELING ABNORMAL [None]
  - MYALGIA [None]
  - NAUSEA [None]
  - PAIN [None]
  - VOMITING [None]
